FAERS Safety Report 19879627 (Version 3)
Quarter: 2022Q2

REPORT INFORMATION
  Report Type: Spontaneous
  Country: CA (occurrence: CA)
  Receive Date: 20210924
  Receipt Date: 20220422
  Transmission Date: 20220721
  Serious: Yes (Other)
  Sender: FDA-Public Use
  Company Number: CA-PFIZER INC-202101210966

PATIENT
  Age: 85 Year
  Sex: Male
  Weight: 81.6 kg

DRUGS (13)
  1. VYNDAQEL [Suspect]
     Active Substance: TAFAMIDIS MEGLUMINE
     Indication: Cardiac amyloidosis
     Dosage: 80 MG, 1X/DAY
     Route: 048
     Dates: start: 20200418
  2. AMLODIPINE [Concomitant]
     Active Substance: AMLODIPINE BESYLATE
     Dosage: 5 MG, DAILY
     Route: 048
  3. ATORVASTATIN [Concomitant]
     Active Substance: ATORVASTATIN
     Dosage: 40 MG, DAILY
     Route: 048
  4. DUTASTERIDE [Concomitant]
     Active Substance: DUTASTERIDE
     Dosage: 0.5 MG, DAILY
     Route: 048
  5. FUROSEMIDE [Concomitant]
     Active Substance: FUROSEMIDE
     Dosage: 40 MG, DAILY
     Route: 048
  6. VITAMINS [Concomitant]
     Active Substance: VITAMINS
     Dosage: UNK
  7. RIVAROXABAN [Concomitant]
     Active Substance: RIVAROXABAN
     Dosage: 20 MG, DAILY
     Route: 048
  8. TELMISARTAN [Concomitant]
     Active Substance: TELMISARTAN
     Dosage: 80 MG, DAILY
     Route: 048
  9. TOLTERODINE TARTRATE [Concomitant]
     Active Substance: TOLTERODINE TARTRATE
     Dosage: 2 MG, 2X/DAY
     Route: 048
  10. UBIDECARENONE [Concomitant]
     Active Substance: UBIDECARENONE
     Dosage: 100 MG, DAILY (30MG CAPSULE 100MG ORAL DAILY)
     Route: 048
  11. VITAMIN C [Concomitant]
     Active Substance: ASCORBIC ACID
     Dosage: 500 MG
  12. VITAMIN D3 [Concomitant]
     Active Substance: CHOLECALCIFEROL
     Dosage: 1000 IU
  13. EPLERENONE [Concomitant]
     Active Substance: EPLERENONE
     Dosage: 25 MG

REACTIONS (12)
  - Pulmonary hypertension [Not Recovered/Not Resolved]
  - Atrial fibrillation [Not Recovered/Not Resolved]
  - Cardiac failure [Unknown]
  - Sleep apnoea syndrome [Unknown]
  - Benign prostatic hyperplasia [Unknown]
  - Hypertension [Unknown]
  - Pulmonary arterial wedge pressure increased [Unknown]
  - Cardiac output decreased [Unknown]
  - Dyspnoea [Unknown]
  - Oedema peripheral [Unknown]
  - Fatigue [Unknown]
  - Dizziness [Not Recovered/Not Resolved]

NARRATIVE: CASE EVENT DATE: 20220401
